FAERS Safety Report 10369008 (Version 3)
Quarter: 2014Q4

REPORT INFORMATION
  Report Type: Spontaneous
  Country: US (occurrence: US)
  Receive Date: 20140807
  Receipt Date: 20141217
  Transmission Date: 20150528
  Serious: No
  Sender: FDA-Public Use
  Company Number: US-ASTRAZENECA-2014SE54834

PATIENT
  Age: 17798 Day
  Sex: Female
  Weight: 78.5 kg

DRUGS (7)
  1. PULMICORT FLEXHALER [Suspect]
     Active Substance: BUDESONIDE
     Indication: COUGH
     Dosage: DOSE: 90MCG,2 PUFFS, FREQUENCY: TWICE DAILY
     Route: 055
     Dates: start: 20140721
  2. METOPROLOL TARTRATE. [Suspect]
     Active Substance: METOPROLOL TARTRATE
     Indication: DIZZINESS
     Route: 048
     Dates: start: 20140611
  3. PULMICORT FLEXHALER [Suspect]
     Active Substance: BUDESONIDE
     Indication: ASTHMA
     Dosage: DOSE: 90MCG,2 PUFFS, FREQUENCY: TWICE DAILY
     Route: 055
     Dates: start: 20140819
  4. PULMICORT FLEXHALER [Suspect]
     Active Substance: BUDESONIDE
     Indication: COUGH
     Dosage: DOSE: 90MCG,2 PUFFS, FREQUENCY: TWICE DAILY
     Route: 055
     Dates: start: 20140819
  5. METOPROLOL TARTRATE. [Suspect]
     Active Substance: METOPROLOL TARTRATE
     Indication: PALPITATIONS
     Route: 048
     Dates: start: 20140611
  6. PULMICORT FLEXHALER [Suspect]
     Active Substance: BUDESONIDE
     Indication: ASTHMA
     Dosage: DOSE: 90MCG,2 PUFFS, FREQUENCY: TWICE DAILY
     Route: 055
     Dates: start: 20140721
  7. METOPROLOL TARTRATE. [Suspect]
     Active Substance: METOPROLOL TARTRATE
     Indication: CHEST PAIN
     Route: 048
     Dates: start: 20140611

REACTIONS (6)
  - Off label use [Unknown]
  - Circumstance or information capable of leading to medication error [Unknown]
  - Device misuse [Recovered/Resolved]
  - Cough [Unknown]
  - Drug dose omission [Unknown]
  - Dyspnoea [Not Recovered/Not Resolved]

NARRATIVE: CASE EVENT DATE: 20140721
